FAERS Safety Report 4439432-4 (Version None)
Quarter: 2004Q3

REPORT INFORMATION
  Report Type: 
  Country: None (occurrence: None)
  Receive Date: 20040728
  Receipt Date: 20040312
  Transmission Date: 20050211
  Serious: No
  Sender: FDA-Public Use
  Company Number: USA040361919

PATIENT
  Age: 42 Year
  Sex: Female
  Weight: 68 kg

DRUGS (4)
  1. STRATTERA [Suspect]
     Indication: ATTENTION DEFICIT/HYPERACTIVITY DISORDER
     Dosage: 40 MG
     Dates: start: 20040309
  2. CELEXA [Concomitant]
  3. ZYRTEC [Concomitant]
  4. LAMICTAL [Concomitant]

REACTIONS (5)
  - ABNORMAL BEHAVIOUR [None]
  - COLD SWEAT [None]
  - HOT FLUSH [None]
  - MYDRIASIS [None]
  - NAUSEA [None]
